FAERS Safety Report 4839331-X (Version None)
Quarter: 2005Q4

REPORT INFORMATION
  Report Type: 
  Country: None (occurrence: None)
  Receive Date: 20051129
  Receipt Date: 20050112
  Transmission Date: 20060501
  Serious: No
  Sender: FDA-Public Use
  Company Number: 2005-00092

PATIENT
  Age: 46 Year
  Sex: Female

DRUGS (3)
  1. WELLBUTRIN SR [Suspect]
     Dosage: 150MG TWICE PER DAY
     Route: 048
     Dates: start: 20040701
  2. CARDIZEM [Concomitant]
     Indication: HYPERTENSION
     Dosage: 240MG PER DAY
     Route: 065
  3. ANTI-HYPERTENSIVE [Concomitant]
     Route: 065

REACTIONS (2)
  - BLOOD PRESSURE INCREASED [None]
  - PHARMACEUTICAL PRODUCT COMPLAINT [None]
